FAERS Safety Report 12573480 (Version 12)
Quarter: 2020Q4

REPORT INFORMATION
  Report Type: Spontaneous
  Country: US (occurrence: US)
  Receive Date: 20160720
  Receipt Date: 20201105
  Transmission Date: 20210113
  Serious: No
  Sender: FDA-Public Use
  Company Number: US-PFIZER INC-2016317519

PATIENT
  Age: 61 Year
  Sex: Male
  Weight: 84 kg

DRUGS (20)
  1. REVATIO [Suspect]
     Active Substance: SILDENAFIL CITRATE
     Dosage: 20 MG, ONCE DAILY
     Route: 048
     Dates: start: 2011
  2. AVAPRO [Concomitant]
     Active Substance: IRBESARTAN
     Dosage: 150 MG, ONCE DAILY
     Route: 048
  3. LYRICA [Concomitant]
     Active Substance: PREGABALIN
     Dosage: UNK
     Dates: start: 20190211
  4. REVATIO [Suspect]
     Active Substance: SILDENAFIL CITRATE
     Dosage: 20 MG, EVERY 4 HOURS (SIX TIMES DAILY)
     Route: 048
  5. LETAIRIS [Concomitant]
     Active Substance: AMBRISENTAN
     Indication: PULMONARY ARTERIAL HYPERTENSION
     Dosage: 10 MG, ONCE DAILY
     Route: 048
     Dates: start: 201306
  6. METFORMIN [Concomitant]
     Active Substance: METFORMIN HYDROCHLORIDE
     Dosage: UNK
     Dates: start: 200701
  7. TENORMIN [Concomitant]
     Active Substance: ATENOLOL
     Dosage: 50 MG, TWICE DAILY
     Route: 048
  8. LIDEX [Concomitant]
     Active Substance: FLUOCINONIDE
     Dosage: UNK, AS NEEDED (TWICE DAILY)
     Route: 061
  9. DOXYCYCLINE. [Concomitant]
     Active Substance: DOXYCYCLINE
     Dosage: UNK
  10. CAUMADIN [Concomitant]
     Active Substance: WARFARIN SODIUM
     Dosage: 5 MG TO 7.5 MG, ONCE DAILY (EVERY 24 HOURS)
     Route: 048
  11. REVATIO [Suspect]
     Active Substance: SILDENAFIL CITRATE
     Indication: PULMONARY ARTERIAL HYPERTENSION
     Dosage: 20 MG, THRICE DAILY
     Route: 048
  12. REVATIO [Suspect]
     Active Substance: SILDENAFIL CITRATE
     Dosage: 40 MG, THRICE DAILY (20MG, TAKE 2 TABLETS BY MOUTH THREE TIMES A DAY)
     Route: 048
     Dates: start: 201903
  13. AMARYL [Concomitant]
     Active Substance: GLIMEPIRIDE
     Dosage: 1 MG, THRICE DAILY
     Route: 048
  14. GLUCOPHAGE [Concomitant]
     Active Substance: METFORMIN HYDROCHLORIDE
     Dosage: 850 MG, THRICE DAILY (WITH MEALS)
     Route: 048
  15. TYVASO [Concomitant]
     Active Substance: TREPROSTINIL
     Indication: PULMONARY HYPERTENSION
  16. TYVASO [Concomitant]
     Active Substance: TREPROSTINIL
     Indication: HYPOTENSION
     Dosage: 18 UG, FOUR TIMES DAILY
     Route: 055
     Dates: start: 201501
  17. LASIX [Concomitant]
     Active Substance: FUROSEMIDE
     Dosage: 60 MG, ONCE DAILY (EVERY 24 HOURS)
     Route: 048
  18. REVATIO [Suspect]
     Active Substance: SILDENAFIL CITRATE
     Dosage: 40 MG, TID  (2 TABLETS 3 TIMES A DAY)
     Route: 048
  19. NORVASC [Concomitant]
     Active Substance: AMLODIPINE BESYLATE
     Dosage: 5 MG, DAILY
     Route: 048
  20. KENALOG [Concomitant]
     Active Substance: TRIAMCINOLONE ACETONIDE
     Dosage: UNK, THRICE DAILY
     Route: 061

REACTIONS (3)
  - Nasopharyngitis [Recovered/Resolved]
  - Off label use [Unknown]
  - Product use issue [Unknown]

NARRATIVE: CASE EVENT DATE: 2011
